FAERS Safety Report 6806885-3 (Version None)
Quarter: 2010Q2

REPORT INFORMATION
  Report Type: 
  Country: None (occurrence: None)
  Receive Date: 20100629
  Receipt Date: 20080611
  Transmission Date: 20101027
  Serious: Yes (Hospitalization)
  Sender: FDA-Public Use
  Company Number: US-PFIZER INC-2008036206

PATIENT
  Sex: Female
  Weight: 95.454 kg

DRUGS (5)
  1. ARTHROTEC [Suspect]
     Indication: BONE PAIN
     Dosage: 75/0.2MG QD EVERY DAY TDD:75/0.2MG
     Dates: start: 20040101, end: 20071021
  2. ARTHROTEC [Suspect]
     Indication: MYALGIA
  3. MULTI-VITAMINS [Concomitant]
  4. CALCIUM CARBONATE [Concomitant]
  5. COUMADIN [Concomitant]

REACTIONS (3)
  - DYSGEUSIA [None]
  - GASTRIC ULCER [None]
  - NAUSEA [None]
